FAERS Safety Report 8990900 (Version 1)
Quarter: 2012Q4

REPORT INFORMATION
  Report Type: 
  Country: US (occurrence: US)
  Receive Date: 20121231
  Receipt Date: 20121231
  Transmission Date: 20130627
  Serious: Yes (Other)
  Sender: FDA-Public Use
  Company Number: PHEH2012US025417

PATIENT
  Sex: Male

DRUGS (4)
  1. DIOVAN HCT [Suspect]
     Indication: OEDEMA PERIPHERAL
     Dosage: 1 DF (160 mg vals/25 mg HCTZ), UNK
  2. STALEVO [Concomitant]
  3. MIRAPEX [Concomitant]
  4. CARDIZEM [Concomitant]

REACTIONS (2)
  - Parkinson^s disease [Unknown]
  - Pulmonary hypertension [Unknown]
